FAERS Safety Report 6818845-7 (Version None)
Quarter: 2010Q2

REPORT INFORMATION
  Report Type: 
  Country: None (occurrence: None)
  Receive Date: 20100630
  Receipt Date: 20100622
  Transmission Date: 20101027
  Serious: Yes (Other)
  Sender: FDA-Public Use
  Company Number: 2010SP035062

PATIENT
  Sex: Male

DRUGS (2)
  1. BETAMETHASONE SODIUM PHOSPHATE [Suspect]
     Indication: TENDONITIS
     Dosage: 1 DF; ONCE IA
     Route: 014
  2. KARDEGIC [Concomitant]

REACTIONS (2)
  - DRUG HYPERSENSITIVITY [None]
  - FORMICATION [None]
